FAERS Safety Report 16781224 (Version 5)
Quarter: 2019Q4

REPORT INFORMATION
  Report Type: Report from Study
  Country: CO (occurrence: CO)
  Receive Date: 20190906
  Receipt Date: 20191104
  Transmission Date: 20200122
  Serious: Yes (Hospitalization)
  Sender: FDA-Public Use
  Company Number: PHHY2019CO206442

PATIENT
  Sex: Female
  Weight: 73 kg

DRUGS (3)
  1. EUTIROX [Concomitant]
     Active Substance: LEVOTHYROXINE SODIUM
     Indication: PRODUCT USED FOR UNKNOWN INDICATION
     Dosage: 100 MG, QD
     Route: 065
  2. JADENU [Suspect]
     Active Substance: DEFERASIROX
     Indication: APLASTIC ANAEMIA
     Dosage: 360 MG, QD (ONE TABLET IN THE MORNING AND ONE TABLET IN THE NIGHT)
     Route: 048
     Dates: start: 201907, end: 20190830
  3. LOSARTAN. [Suspect]
     Active Substance: LOSARTAN
     Indication: PRODUCT USED FOR UNKNOWN INDICATION
     Dosage: 100 MG, QD
     Route: 065

REACTIONS (8)
  - Decreased appetite [Recovering/Resolving]
  - Peripheral swelling [Recovering/Resolving]
  - Blood electrolytes decreased [Recovering/Resolving]
  - Bone marrow disorder [Recovering/Resolving]
  - Syncope [Recovering/Resolving]
  - Haemoglobin decreased [Recovering/Resolving]
  - Inappropriate schedule of product administration [Unknown]
  - Insomnia [Recovering/Resolving]
